FAERS Safety Report 18405181 (Version 4)
Quarter: 2021Q2

REPORT INFORMATION
  Report Type: Report from Study
  Country: DE (occurrence: DE)
  Receive Date: 20201020
  Receipt Date: 20210608
  Transmission Date: 20210717
  Serious: Yes (Hospitalization)
  Sender: FDA-Public Use
  Company Number: DE-PFIZER INC-2020135327

PATIENT
  Sex: Female

DRUGS (18)
  1. OXYCODONE [OXYCODONE HYDROCHLORIDE] [Concomitant]
     Active Substance: OXYCODONE HYDROCHLORIDE
     Dosage: 30 MG, 1X/DAY
     Route: 065
  2. NO SUBJECT DRUG [Suspect]
     Active Substance: UNSPECIFIED INGREDIENT
     Dosage: NO DOSE GIVEN
  3. METHOTREXATE SODIUM. [Suspect]
     Active Substance: METHOTREXATE SODIUM
     Dosage: 15 MG, 1X/WEEK
     Route: 065
     Dates: end: 201911
  4. ORTOTON [METHOCARBAMOL] [Concomitant]
     Active Substance: METHOCARBAMOL
     Dosage: UNK, AS NEEDED (AS REQUIRED)
     Route: 065
  5. METHOTREXATE SODIUM. [Suspect]
     Active Substance: METHOTREXATE SODIUM
     Dosage: 10 MG 1X/WEEK
     Route: 065
     Dates: start: 202012, end: 202101
  6. RIXATHON [Suspect]
     Active Substance: RITUXIMAB
     Dosage: 1000 MG
     Route: 042
     Dates: start: 20190718
  7. ZOPICLONE [Concomitant]
     Active Substance: ZOPICLONE
     Dosage: UNK, 1X/DAY AT NIGHT
     Route: 065
  8. MAGNESIUM VERLA [MAGNESIUM ASPARTATE] [Concomitant]
     Dosage: UNK
  9. OXYCODONE [OXYCODONE HYDROCHLORIDE] [Concomitant]
     Active Substance: OXYCODONE HYDROCHLORIDE
     Dosage: 1 DF, TID
  10. METAMIZOLE [Concomitant]
     Active Substance: METAMIZOLE
     Dosage: 1 G
     Route: 065
  11. TORASEMID [Concomitant]
     Active Substance: TORSEMIDE
     Dosage: 1 DF, QD
  12. LEFLUNOMIDE. [Suspect]
     Active Substance: LEFLUNOMIDE
     Dosage: 10 MG, 1X/DAY
     Route: 065
     Dates: end: 202012
  13. LEVOCETIRIZIN [Concomitant]
     Active Substance: LEVOCETIRIZINE DIHYDROCHLORIDE
     Dosage: 5 MG
     Route: 065
  14. LEVOCETIRIZIN [Concomitant]
     Active Substance: LEVOCETIRIZINE DIHYDROCHLORIDE
     Dosage: 1 DF, BID
  15. ZESSLY [Suspect]
     Active Substance: INFLIXIMAB
     Dosage: 300 MG, WEEKLY (EVERY 6 WEEKS)
     Route: 065
     Dates: start: 20200828, end: 20201222
  16. METAMIZOLE [Concomitant]
     Active Substance: METAMIZOLE
     Dosage: 1 DF, 4X/DAY
  17. OMEPRAZOL [Concomitant]
     Active Substance: OMEPRAZOLE
     Dosage: 1 DF, 1X/DAY
     Route: 065
  18. TORASEMID [Concomitant]
     Active Substance: TORSEMIDE
     Dosage: 5 MG
     Route: 065

REACTIONS (11)
  - Musculoskeletal pain [Recovered/Resolved]
  - Pain in extremity [Recovered/Resolved]
  - Arthralgia [Recovered/Resolved]
  - Gingivitis [Recovered/Resolved]
  - Dyspnoea [Not Recovered/Not Resolved]
  - Pain [Recovered/Resolved]
  - Spinal osteoarthritis [Not Recovered/Not Resolved]
  - Dry skin [Not Recovered/Not Resolved]
  - Gingivitis [Unknown]
  - Rheumatoid arthritis [Recovered/Resolved]
  - Synovial cyst [Unknown]

NARRATIVE: CASE EVENT DATE: 20190810
